FAERS Safety Report 9308658 (Version 1)
Quarter: 2013Q2

REPORT INFORMATION
  Report Type: Spontaneous
  Country: US (occurrence: US)
  Receive Date: 20130524
  Receipt Date: 20130524
  Transmission Date: 20140414
  Serious: Yes (Other)
  Sender: FDA-Public Use
  Company Number: US-ASTRAZENECA-2013SE34892

PATIENT
  Sex: Female

DRUGS (4)
  1. FASLODEX [Suspect]
     Indication: BREAST CANCER METASTATIC
     Route: 030
  2. FASLODEX [Suspect]
     Indication: BREAST CANCER METASTATIC
     Route: 030
  3. TPN [Concomitant]
  4. LIPIDS [Concomitant]

REACTIONS (1)
  - Vomiting [Unknown]
